FAERS Safety Report 11386019 (Version 1)
Quarter: 2015Q3

REPORT INFORMATION
  Report Type: Spontaneous
  Country: US (occurrence: None)
  Receive Date: 20150813
  Receipt Date: 20150813
  Transmission Date: 20151125
  Serious: Yes (Other)
  Sender: FDA-Public Use
  Company Number: None

PATIENT
  Age: 12 Year
  Sex: Male
  Weight: 33.6 kg

DRUGS (1)
  1. ORKAMBI [Suspect]
     Active Substance: IVACAFTOR\LUMACAFTOR
     Indication: CYSTIC FIBROSIS
     Dosage: 1 TABLET BID ORAL
     Route: 048
     Dates: start: 20150708, end: 20150812

REACTIONS (5)
  - Decreased appetite [None]
  - Weight decreased [None]
  - Faecal volume increased [None]
  - Defaecation urgency [None]
  - Diarrhoea [None]

NARRATIVE: CASE EVENT DATE: 20150710
